FAERS Safety Report 23239991 (Version 1)
Quarter: 2023Q4

REPORT INFORMATION
  Report Type: Report from Study
  Country: US (occurrence: None)
  Receive Date: 20231129
  Receipt Date: 20231129
  Transmission Date: 20240110
  Serious: Yes (Hospitalization)
  Sender: FDA-Public Use
  Company Number: US-ROCHE-3462759

PATIENT

DRUGS (1)
  1. ATEZOLIZUMAB [Suspect]
     Active Substance: ATEZOLIZUMAB
     Indication: Squamous cell carcinoma of head and neck
     Dosage: LAST TREATMENT OF ATEZOLIZUMAB ON 23/AUG/2023
     Route: 041

REACTIONS (7)
  - Pharyngeal haemorrhage [Recovering/Resolving]
  - Anaemia [Recovered/Resolved with Sequelae]
  - Post procedural haemorrhage [Recovered/Resolved with Sequelae]
  - Lymphocyte count decreased [Recovered/Resolved with Sequelae]
  - Embolism arterial [Recovering/Resolving]
  - Embolism [Recovered/Resolved with Sequelae]
  - Trismus [Recovering/Resolving]

NARRATIVE: CASE EVENT DATE: 20231020
